FAERS Safety Report 5073464-0 (Version None)
Quarter: 2006Q3

REPORT INFORMATION
  Report Type: 
  Country: None (occurrence: None)
  Receive Date: 20060717
  Receipt Date: 20051117
  Transmission Date: 20061208
  Serious: No
  Sender: FDA-Public Use
  Company Number: 2005002247

PATIENT
  Sex: Male

DRUGS (2)
  1. TARCEVA [Suspect]
     Indication: RENAL CELL CARCINOMA STAGE UNSPECIFIED
     Dosage: 100 MG (QD), ORAL
     Route: 048
     Dates: start: 20050101
  2. AVASTIN [Concomitant]

REACTIONS (3)
  - HYPERTENSION [None]
  - HYPOTENSION [None]
  - RASH [None]
